FAERS Safety Report 16869767 (Version 2)
Quarter: 2019Q4

REPORT INFORMATION
  Report Type: Spontaneous
  Country: CA (occurrence: CA)
  Receive Date: 20190930
  Receipt Date: 20191002
  Transmission Date: 20200122
  Serious: Yes (Other)
  Sender: FDA-Public Use
  Company Number: CA-PFIZER INC-2018094559

PATIENT
  Age: 46 Year
  Sex: Male
  Weight: 106 kg

DRUGS (4)
  1. SYNTHROID [Concomitant]
     Active Substance: LEVOTHYROXINE SODIUM
     Dosage: 0.25 UNK, UNK
     Route: 048
  2. SUTENT [Suspect]
     Active Substance: SUNITINIB MALATE
     Indication: METASTATIC RENAL CELL CARCINOMA
     Dosage: 37.5 MG, CYCLIC (DAILY FOR 4 WEEKS FOLLOWED BY 2 WEEKS OFF)
     Route: 048
     Dates: start: 20180307
  3. SUTENT [Suspect]
     Active Substance: SUNITINIB MALATE
     Dosage: 50 MG, CYCLIC (DAILY FOR 4 WEEKS FOLLOWED BY 2 WEEKS OFF)
     Route: 048
     Dates: end: 20190817
  4. MORPHINE [Concomitant]
     Active Substance: MORPHINE
     Route: 048

REACTIONS (2)
  - Renal failure [Recovered/Resolved]
  - Hypothyroidism [Unknown]

NARRATIVE: CASE EVENT DATE: 20190408
